FAERS Safety Report 9193299 (Version 3)
Quarter: 2013Q2

REPORT INFORMATION
  Report Type: Spontaneous
  Country: DE (occurrence: DE)
  Receive Date: 20130327
  Receipt Date: 20130610
  Transmission Date: 20140414
  Serious: Yes (Life-Threatening, Hospitalization, Other)
  Sender: FDA-Public Use
  Company Number: DE-JNJFOC-20130314219

PATIENT
  Age: 86 Year
  Sex: Female

DRUGS (10)
  1. XARELTO [Suspect]
     Indication: CEREBROVASCULAR ACCIDENT PROPHYLAXIS
     Route: 048
     Dates: start: 20120917, end: 20130117
  2. XARELTO [Suspect]
     Indication: ATRIAL FIBRILLATION
     Route: 048
     Dates: start: 20120917, end: 20130117
  3. ACETYLSALICYLIC ACID [Interacting]
     Indication: PRODUCT USED FOR UNKNOWN INDICATION
     Route: 065
  4. TORASEMID [Concomitant]
     Route: 065
  5. PANTOZOL [Concomitant]
     Route: 065
  6. RAMIPRIL [Concomitant]
     Route: 065
  7. AMLODIPINE [Concomitant]
     Route: 065
  8. SYMBICORT [Concomitant]
     Route: 065
  9. SPIRIVA [Concomitant]
     Route: 065
  10. THEOPHYLLIN [Concomitant]
     Route: 065

REACTIONS (5)
  - Renal failure acute [Unknown]
  - Blood creatinine increased [Unknown]
  - Haemorrhage [Unknown]
  - Fall [Unknown]
  - Drug interaction [Unknown]
